FAERS Safety Report 7476146-0 (Version None)
Quarter: 2011Q2

REPORT INFORMATION
  Report Type: 
  Country: None (occurrence: None)
  Receive Date: 20110512
  Receipt Date: 20110503
  Transmission Date: 20111010
  Serious: Yes (Other)
  Sender: FDA-Public Use
  Company Number: US-MERCK-0705USA02838

PATIENT
  Age: 56 Year
  Sex: Female
  Weight: 50 kg

DRUGS (3)
  1. FOSAMAX [Suspect]
     Route: 048
     Dates: start: 20031119
  2. FOSAMAX [Suspect]
     Indication: OSTEOPOROSIS
     Route: 048
     Dates: start: 20041201, end: 20060401
  3. FOSAMAX [Suspect]
     Route: 048
     Dates: start: 20050201, end: 20060401

REACTIONS (21)
  - OVERDOSE [None]
  - CHEST PAIN [None]
  - EMPHYSEMA [None]
  - PEDAL PULSE DECREASED [None]
  - OSTEONECROSIS OF JAW [None]
  - SYNCOPE [None]
  - RHINORRHOEA [None]
  - ORAL INFECTION [None]
  - RHINITIS [None]
  - PAIN [None]
  - TRISMUS [None]
  - BRUXISM [None]
  - INTRACRANIAL HYPOTENSION [None]
  - ORAL PAIN [None]
  - BONE LOSS [None]
  - CHRONIC OBSTRUCTIVE PULMONARY DISEASE [None]
  - EUSTACHIAN TUBE DYSFUNCTION [None]
  - GINGIVITIS [None]
  - NASAL CONGESTION [None]
  - EAR DISORDER [None]
  - MIDDLE EAR EFFUSION [None]
